FAERS Safety Report 9489975 (Version 2)
Quarter: 2013Q3

REPORT INFORMATION
  Report Type: Spontaneous
  Country: US (occurrence: US)
  Receive Date: 20130829
  Receipt Date: 20130829
  Transmission Date: 20140515
  Serious: Yes (Hospitalization)
  Sender: FDA-Public Use
  Company Number: US-US-EMD SERONO, INC.-7161841

PATIENT
  Age: 50 Year
  Sex: Male

DRUGS (5)
  1. REBIF [Suspect]
     Indication: MULTIPLE SCLEROSIS
     Dates: start: 20050722
  2. REBIF [Suspect]
     Dates: start: 201209
  3. REBIF [Suspect]
     Route: 058
     Dates: start: 201209
  4. AMLODIPINE                         /00972402/ [Concomitant]
     Indication: HYPERTENSION
  5. LISINOPRIL                         /00894002/ [Concomitant]
     Indication: HYPERTENSION

REACTIONS (2)
  - Depression [Not Recovered/Not Resolved]
  - Multiple sclerosis relapse [Recovering/Resolving]
